FAERS Safety Report 23844129 (Version 1)
Quarter: 2024Q2

REPORT INFORMATION
  Report Type: Spontaneous
  Country: US (occurrence: US)
  Receive Date: 20240510
  Receipt Date: 20240510
  Transmission Date: 20240716
  Serious: No
  Sender: FDA-Public Use
  Company Number: US-SANOFI-02039255

PATIENT
  Age: 69 Year
  Sex: Male

DRUGS (1)
  1. TOUJEO MAX [Suspect]
     Active Substance: INSULIN GLARGINE
     Indication: Type 2 diabetes mellitus
     Dosage: 52-54 UNITS AM + 20 UNITS PM BID AND DRUG TREATMENT DURATION:300-400 UNITS LEFT

REACTIONS (1)
  - Off label use [Unknown]
